FAERS Safety Report 10091008 (Version 2)
Quarter: 2014Q2

REPORT INFORMATION
  Report Type: Spontaneous
  Country: US (occurrence: US)
  Receive Date: 20140421
  Receipt Date: 20140421
  Transmission Date: 20141212
  Serious: Yes (Other)
  Sender: FDA-Public Use
  Company Number: US-BANPHARM-20142548

PATIENT
  Age: 40 Year
  Sex: Female
  Weight: 54.88 kg

DRUGS (6)
  1. ALEVE LIQUID GELS 220 MG [Suspect]
     Dosage: 2 DF, BID,
     Route: 048
     Dates: start: 20140326, end: 20140329
  2. ALEVE LIQUID GELS 220 MG [Suspect]
     Indication: INFLAMMATION
     Dosage: 1 DF, BID,
     Route: 048
     Dates: start: 20140330, end: 20140402
  3. ORTHO TRI CYCLE [Concomitant]
  4. LEXAPRO [Concomitant]
  5. KLONOPIN [Concomitant]
  6. ACIPHEX [Concomitant]

REACTIONS (1)
  - Blood urine present [Not Recovered/Not Resolved]
